FAERS Safety Report 9901659 (Version 1)
Quarter: 2014Q1

REPORT INFORMATION
  Report Type: Spontaneous
  Country: US (occurrence: US)
  Receive Date: 20140217
  Receipt Date: 20140217
  Transmission Date: 20141002
  Serious: Yes (Other)
  Sender: FDA-Public Use
  Company Number: ALCN2014US001020

PATIENT
  Age: 75 Year
  Sex: Male

DRUGS (3)
  1. ILEVRO [Suspect]
     Indication: POSTOPERATIVE CARE
     Dosage: 1 GTT, QD
  2. ILEVRO [Suspect]
     Indication: PREOPERATIVE CARE
  3. DUREZOL [Suspect]
     Indication: POSTOPERATIVE CARE
     Dosage: 1 GTT, BID

REACTIONS (1)
  - Cystoid macular oedema [Recovered/Resolved]
